FAERS Safety Report 12316247 (Version 1)
Quarter: 2016Q2

REPORT INFORMATION
  Report Type: Not Available
  Country: US (occurrence: US)
  Receive Date: 20160428
  Receipt Date: 20160428
  Transmission Date: 20160815
  Serious: Yes (Hospitalization)
  Sender: FDA-Public Use
  Company Number: US-ANIPHARMA-2016-US-002440

PATIENT
  Age: 73 Year
  Sex: Female
  Weight: 86.18 kg

DRUGS (4)
  1. PEPCID [Concomitant]
     Active Substance: FAMOTIDINE
     Dosage: DAILY
  2. PROPRANOLOL [Suspect]
     Active Substance: PROPRANOLOL\PROPRANOLOL HYDROCHLORIDE
     Dosage: 80 MG DAILY
     Route: 048
  3. UNKNOWN INHALER [Concomitant]
     Active Substance: UNSPECIFIED INGREDIENT
  4. TUMS [Concomitant]
     Active Substance: CALCIUM CARBONATE
     Dosage: AS NEEDED

REACTIONS (7)
  - Heart rate increased [Not Recovered/Not Resolved]
  - Drug ineffective [Not Recovered/Not Resolved]
  - Heart rate irregular [Unknown]
  - Tremor [Unknown]
  - Headache [Unknown]
  - Tinnitus [Not Recovered/Not Resolved]
  - Blood pressure increased [Not Recovered/Not Resolved]

NARRATIVE: CASE EVENT DATE: 201603
